FAERS Safety Report 15000936 (Version 3)
Quarter: 2018Q3

REPORT INFORMATION
  Report Type: Spontaneous
  Country: US (occurrence: US)
  Receive Date: 20180612
  Receipt Date: 20180817
  Transmission Date: 20181010
  Serious: Yes (Death, Life-Threatening, Hospitalization, Other)
  Sender: FDA-Public Use
  Company Number: US-ELI_LILLY_AND_COMPANY-US201806000759

PATIENT
  Age: 54 Year
  Sex: Female

DRUGS (1)
  1. ADCIRCA [Suspect]
     Active Substance: TADALAFIL
     Indication: PULMONARY HYPERTENSION
     Dosage: 40 MG, DAILY
     Route: 065

REACTIONS (7)
  - Interstitial lung disease [Fatal]
  - Muscle disorder [Unknown]
  - Dyspnoea [Unknown]
  - Polymyositis [Unknown]
  - Pulmonary hypertension [Unknown]
  - Oxygen saturation decreased [Unknown]
  - Lung disorder [Unknown]

NARRATIVE: CASE EVENT DATE: 20180608
